FAERS Safety Report 16054127 (Version 1)
Quarter: 2019Q1

REPORT INFORMATION
  Report Type: Report from Study
  Country: None (occurrence: JP)
  Receive Date: 20190308
  Receipt Date: 20190308
  Transmission Date: 20190418
  Serious: Yes (Death, Life-Threatening, Other)
  Sender: FDA-Public Use
  Company Number: JP-EISAI MEDICAL RESEARCH-EC-2016-013767

PATIENT
  Age: 61 Year
  Sex: Male
  Weight: 79 kg

DRUGS (2)
  1. LENVIMA [Suspect]
     Active Substance: LENVATINIB
     Indication: ANAPLASTIC THYROID CANCER
     Route: 048
     Dates: start: 20150617, end: 20150901
  2. DRIED THYROID [Concomitant]
     Indication: THYROID DISORDER

REACTIONS (9)
  - Decreased appetite [Unknown]
  - Tracheal stenosis [Not Recovered/Not Resolved]
  - Fatigue [Unknown]
  - Paralysis recurrent laryngeal nerve [Not Recovered/Not Resolved]
  - Malignant neoplasm progression [Fatal]
  - Hypothyroidism [Not Recovered/Not Resolved]
  - Proteinuria [Unknown]
  - Weight decreased [Unknown]
  - Pneumonia aspiration [Not Recovered/Not Resolved]

NARRATIVE: CASE EVENT DATE: 2015
